FAERS Safety Report 15978771 (Version 2)
Quarter: 2019Q1

REPORT INFORMATION
  Report Type: Spontaneous
  Country: FR (occurrence: FR)
  Receive Date: 20190219
  Receipt Date: 20190314
  Transmission Date: 20190418
  Serious: Yes (Death, Other)
  Sender: FDA-Public Use
  Company Number: FR-ABBVIE-19P-056-2671243-00

PATIENT
  Age: 65 Year
  Sex: Male

DRUGS (8)
  1. ENANTONE LP [Suspect]
     Active Substance: LEUPROLIDE ACETATE
     Indication: PROSTATE CANCER RECURRENT
     Dosage: 30 MILLIGRAM, Q6MONTHS
     Route: 065
     Dates: start: 201408, end: 201508
  2. XGEVA [Concomitant]
     Active Substance: DENOSUMAB
     Indication: METASTASES TO BONE
     Dosage: 4 MILLIGRAM
     Route: 058
     Dates: start: 201807
  3. TAXOTERE [Concomitant]
     Active Substance: DOCETAXEL
     Indication: METASTASIS
     Dosage: UNK
     Route: 042
     Dates: start: 20180905, end: 20181015
  4. ENANTONE LP [Suspect]
     Active Substance: LEUPROLIDE ACETATE
     Dosage: 30 MILLIGRAM, Q6MONTHS
     Route: 065
     Dates: start: 201612, end: 201707
  5. ENANTONE LP [Suspect]
     Active Substance: LEUPROLIDE ACETATE
     Dosage: 30 MILLIGRAM, Q6MONTHS
     Route: 058
     Dates: start: 20180705
  6. JEVTANA [Concomitant]
     Active Substance: CABAZITAXEL
     Indication: METASTASIS
     Dosage: UNK
     Route: 042
     Dates: start: 201810
  7. OROCAL VITAMIN D [Concomitant]
     Active Substance: CALCIUM CARBONATE\VITAMIN D
     Indication: PRODUCT USED FOR UNKNOWN INDICATION
     Dosage: UNK
     Dates: start: 20180704
  8. JEVTANA [Concomitant]
     Active Substance: CABAZITAXEL
     Indication: METASTASES TO CENTRAL NERVOUS SYSTEM

REACTIONS (1)
  - Prostate cancer [Fatal]

NARRATIVE: CASE EVENT DATE: 20190116
